FAERS Safety Report 6430642-3 (Version None)
Quarter: 2009Q4

REPORT INFORMATION
  Report Type: 
  Country: None (occurrence: None)
  Receive Date: 20091106
  Receipt Date: 20091104
  Transmission Date: 20100525
  Serious: Yes (Hospitalization)
  Sender: FDA-Public Use
  Company Number: B0598413A

PATIENT
  Sex: Female
  Weight: 60 kg

DRUGS (3)
  1. TOPOTECAN [Suspect]
     Dosage: .75MGM2 EVERY 3 WEEKS
     Route: 042
     Dates: start: 20090918
  2. CISPLATIN [Suspect]
     Dosage: 50MGM2 EVERY 3 WEEKS
     Route: 042
     Dates: start: 20090918
  3. RED BLOOD CELLS [Concomitant]
     Dosage: 2UD PER DAY
     Route: 042
     Dates: start: 20091008, end: 20091008

REACTIONS (7)
  - ANAEMIA [None]
  - BLOOD CREATININE INCREASED [None]
  - BLOOD UREA INCREASED [None]
  - C-REACTIVE PROTEIN INCREASED [None]
  - GASTRIC HAEMORRHAGE [None]
  - GASTRIC ULCER [None]
  - WHITE BLOOD CELL COUNT INCREASED [None]
